FAERS Safety Report 20856230 (Version 1)
Quarter: 2022Q2

REPORT INFORMATION
  Report Type: Report from Study
  Country: KR (occurrence: KR)
  Receive Date: 20220520
  Receipt Date: 20220520
  Transmission Date: 20220721
  Serious: Yes (Other)
  Sender: FDA-Public Use
  Company Number: KR-TAKEDA-2022TUS033450

PATIENT
  Age: 45 Year
  Sex: Female
  Weight: 56 kg

DRUGS (19)
  1. VEDOLIZUMAB [Suspect]
     Active Substance: VEDOLIZUMAB
     Indication: Colitis ulcerative
     Dosage: 300 MILLIGRAM
     Route: 065
     Dates: start: 20211220
  2. FEROBA YOU [Concomitant]
     Indication: Normochromic anaemia
     Dosage: UNK UNK, QD
     Route: 048
     Dates: start: 20210112, end: 20220202
  3. B-COM [Concomitant]
     Indication: Supplementation therapy
     Dosage: UNK UNK, QD
     Route: 048
     Dates: start: 20200917, end: 20211229
  4. ENCOVER [Concomitant]
     Indication: Haematochezia
     Dosage: 200 MILLIGRAM, QD
     Route: 048
     Dates: start: 20211229, end: 20211229
  5. ENCOVER [Concomitant]
     Dosage: 200 MILLILITER, TID
     Route: 048
     Dates: start: 20211230, end: 20211230
  6. NUTRIFLEX LIPID PERI [Concomitant]
     Indication: Haematochezia
     Dosage: 1250 MILLIGRAM, QD
     Route: 042
     Dates: start: 20211229, end: 20211229
  7. Ciplus [Concomitant]
     Indication: Haematochezia
     Dosage: 400 MILLIGRAM, QD
     Route: 042
     Dates: start: 20211229, end: 20211229
  8. Ciplus [Concomitant]
     Dosage: 400 MILLIGRAM, TID
     Route: 042
     Dates: start: 20211230, end: 20211230
  9. Ciplus [Concomitant]
     Dosage: 400 MILLIGRAM, BID
     Route: 042
     Dates: start: 20211231, end: 20220103
  10. Disolrin [Concomitant]
     Indication: Haematochezia
     Dosage: 40 MILLIGRAM, QD
     Route: 042
     Dates: start: 20211229, end: 20220103
  11. PHAZYME [Concomitant]
     Active Substance: DIMETHICONE 410
     Indication: Haematochezia
     Dosage: 95 MILLIGRAM, QD
     Route: 048
     Dates: start: 20220101, end: 20220103
  12. MECKOOL [Concomitant]
     Indication: Haematochezia
     Dosage: 10 MILLIGRAM, QD
     Route: 042
     Dates: start: 20220101, end: 20220101
  13. TIROPRAMIDE [Concomitant]
     Active Substance: TIROPRAMIDE
     Dosage: 100 MILLIGRAM, TID
     Route: 048
     Dates: start: 20211220, end: 20220202
  14. ASACOL [Concomitant]
     Active Substance: MESALAMINE
     Dosage: 100 MILLILITER, QD
     Route: 054
     Dates: start: 20211231, end: 20220111
  15. PREDNISOLONE [Concomitant]
     Active Substance: PREDNISOLONE
     Dosage: 30 MILLIGRAM, QD
     Route: 048
     Dates: start: 20220104, end: 20220110
  16. PREDNISOLONE [Concomitant]
     Active Substance: PREDNISOLONE
     Dosage: 20 MILLIGRAM, QD
     Route: 048
     Dates: start: 20210111, end: 20220124
  17. PREDNISOLONE [Concomitant]
     Active Substance: PREDNISOLONE
     Dosage: 10 MILLIGRAM
     Route: 048
     Dates: start: 20220125, end: 20220202
  18. PENTASA [Concomitant]
     Active Substance: MESALAMINE
     Dosage: UNK UNK, BID
     Route: 048
     Dates: start: 20180723
  19. DICAMAX D PLUS [Concomitant]
     Indication: Supplementation therapy
     Dosage: UNK UNK, QD
     Route: 048
     Dates: start: 20190718

REACTIONS (1)
  - Cytomegalovirus colitis [Recovered/Resolved]

NARRATIVE: CASE EVENT DATE: 20220111
